FAERS Safety Report 9977013 (Version 1)
Quarter: 2014Q1

REPORT INFORMATION
  Report Type: Report from Study
  Country: US (occurrence: US)
  Receive Date: 20140306
  Receipt Date: 20140306
  Transmission Date: 20141002
  Serious: No
  Sender: FDA-Public Use
  Company Number: US-ABBVIE-13P-163-1168190-00

PATIENT
  Age: 51 Year
  Sex: Female

DRUGS (9)
  1. HUMIRA [Suspect]
     Indication: RHEUMATOID ARTHRITIS
     Dates: start: 20131101
  2. OXYGEN [Concomitant]
     Indication: EMPHYSEMA
     Route: 045
  3. PAIN PILL [Concomitant]
     Indication: ARTHRALGIA
     Dosage: 10/325MG
  4. TRAZODONE [Concomitant]
     Indication: INSOMNIA
     Dosage: 1-2 AT SLEEP
  5. XANAX [Concomitant]
     Indication: ANXIETY
  6. STEROIDS [Concomitant]
     Indication: RHEUMATOID ARTHRITIS
     Dosage: 5MG DAILY, TAPERING OFF
  7. GABAPENTIN [Concomitant]
     Indication: PAIN
     Dosage: 3 DAILY
  8. CALCIUM W/VITAMIN D NOS [Concomitant]
     Indication: PRODUCT USED FOR UNKNOWN INDICATION
  9. FOSAMAX [Concomitant]
     Indication: OSTEOPOROSIS

REACTIONS (1)
  - Pain of skin [Recovered/Resolved]
